FAERS Safety Report 10999356 (Version 1)
Quarter: 2015Q2

REPORT INFORMATION
  Report Type: Spontaneous
  Country: US (occurrence: US)
  Receive Date: 20150408
  Receipt Date: 20150408
  Transmission Date: 20150821
  Serious: No
  Sender: FDA-Public Use
  Company Number: US-SA-2014SA065927

PATIENT
  Age: 85 Year
  Sex: Female

DRUGS (1)
  1. ALLEGRA [Suspect]
     Active Substance: FEXOFENADINE HYDROCHLORIDE
     Indication: MULTIPLE ALLERGIES
     Route: 048
     Dates: start: 20140512

REACTIONS (6)
  - Drug ineffective [Unknown]
  - Chronic sinusitis [Unknown]
  - Sinus congestion [Unknown]
  - Ear discomfort [Unknown]
  - Nasal dryness [Unknown]
  - Sneezing [Unknown]
